FAERS Safety Report 9725435 (Version 1)
Quarter: 2013Q4

REPORT INFORMATION
  Report Type: Spontaneous
  Country: US (occurrence: None)
  Receive Date: 20131202
  Receipt Date: 20131202
  Transmission Date: 20140711
  Serious: Yes (Other)
  Sender: FDA-Public Use
  Company Number: None

PATIENT
  Age: 26 Year
  Sex: 0

DRUGS (1)
  1. SUBOXONE [Suspect]
     Dosage: 1, ONCE DAILY, TAKEN BY MOUTH
     Route: 048

REACTIONS (12)
  - Drug dependence [None]
  - Condition aggravated [None]
  - Malaise [None]
  - Malaise [None]
  - Hyperhidrosis [None]
  - Fatigue [None]
  - Discomfort [None]
  - Dental caries [None]
  - Dry mouth [None]
  - Depression [None]
  - Drug withdrawal syndrome [None]
  - Treatment noncompliance [None]
